FAERS Safety Report 6648884-0 (Version None)
Quarter: 2010Q1

REPORT INFORMATION
  Report Type: 
  Country: None (occurrence: None)
  Receive Date: 20100324
  Receipt Date: 20100312
  Transmission Date: 20100710
  Serious: Yes (Other)
  Sender: FDA-Public Use
  Company Number: US-PFIZER INC-2010034432

PATIENT
  Sex: Male
  Weight: 104.3 kg

DRUGS (1)
  1. NARDIL [Suspect]
     Dosage: 300 MG, 3X/DAY
     Route: 048
     Dates: start: 20030901

REACTIONS (1)
  - HYPERSENSITIVITY [None]
